FAERS Safety Report 5104053-7 (Version None)
Quarter: 2006Q3

REPORT INFORMATION
  Report Type: 
  Country: None (occurrence: None)
  Receive Date: 20060911
  Receipt Date: 20060829
  Transmission Date: 20061208
  Serious: Yes (Hospitalization)
  Sender: FDA-Public Use
  Company Number: 2006104048

PATIENT
  Age: 65 Year
  Sex: Female

DRUGS (10)
  1. DIFLUCAN [Suspect]
     Indication: CANDIDIASIS
     Dosage: 400 MG (400 MG, 1 IN 1 D), ORAL
     Route: 048
     Dates: start: 20060127, end: 20060210
  2. ZOCOR [Suspect]
     Indication: HYPERLIPIDAEMIA
     Dosage: SEE IMAGE
     Route: 048
     Dates: end: 20060130
  3. ZOCOR [Suspect]
     Indication: HYPERLIPIDAEMIA
     Dosage: SEE IMAGE
     Route: 048
     Dates: start: 20060131, end: 20060215
  4. ZESTRIL [Concomitant]
  5. METOPROLOL TARTRATE [Concomitant]
  6. TOREM                                (TORASEMIDE) [Concomitant]
  7. ASPIRINE                      (ACETULSALICYLIC ACID) [Concomitant]
  8. CITALOPRAM HYDROBROMIDE [Concomitant]
  9. INSULIN MIXTARD HUMAN (INSULIN HUMAN, INSULIN HUMAN INJECTION, ISOPHAN [Concomitant]
  10. AUGMENTIN '125' [Concomitant]

REACTIONS (11)
  - ASTHENIA [None]
  - BLOOD CREATINE PHOSPHOKINASE INCREASED [None]
  - CANDIDIASIS [None]
  - DEVICE RELATED INFECTION [None]
  - DRUG INTERACTION [None]
  - DYSLIPIDAEMIA [None]
  - EMPYEMA [None]
  - GENERAL PHYSICAL CONDITION ABNORMAL [None]
  - RENAL FAILURE ACUTE [None]
  - RHABDOMYOLYSIS [None]
  - TRANSAMINASES INCREASED [None]
